FAERS Safety Report 9984203 (Version 1)
Quarter: 2014Q1

REPORT INFORMATION
  Report Type: Report from Study
  Country: US (occurrence: US)
  Receive Date: 20140307
  Receipt Date: 20140307
  Transmission Date: 20141002
  Serious: No
  Sender: FDA-Public Use
  Company Number: US-ABBVIE-13P-163-1182636-00

PATIENT
  Sex: Female

DRUGS (4)
  1. HUMIRA [Suspect]
     Indication: PSORIATIC ARTHROPATHY
     Dates: start: 201308
  2. CELEBREX [Concomitant]
     Indication: PSORIATIC ARTHROPATHY
  3. VOLTAREN [Concomitant]
     Indication: PAIN
  4. ZOLOFT [Concomitant]
     Indication: ANXIETY
     Dates: start: 201311

REACTIONS (4)
  - Stress [Not Recovered/Not Resolved]
  - Injection site pain [Not Recovered/Not Resolved]
  - Nasal congestion [Not Recovered/Not Resolved]
  - Sleep disorder [Not Recovered/Not Resolved]
